FAERS Safety Report 16787337 (Version 1)
Quarter: 2019Q3

REPORT INFORMATION
  Report Type: Spontaneous
  Country: DE (occurrence: DE)
  Receive Date: 20190909
  Receipt Date: 20190909
  Transmission Date: 20191005
  Serious: Yes (Hospitalization)
  Sender: FDA-Public Use
  Company Number: PHHY2019DE205796

PATIENT
  Age: 77 Year
  Sex: Female
  Weight: 86 kg

DRUGS (27)
  1. METFORMIN HYDROCHLORIDE. [Suspect]
     Active Substance: METFORMIN HYDROCHLORIDE
     Indication: TYPE 2 DIABETES MELLITUS
     Dosage: 1000 MG, QD (1000 MG, DAIILY)
     Route: 048
  2. METOPROLOL. [Concomitant]
     Active Substance: METOPROLOL
     Indication: HYPERTENSION
     Dosage: 142.5 MG, QD (142.5 MG, DAILY)
     Route: 048
  3. ENALAPRIL [Concomitant]
     Active Substance: ENALAPRIL
     Indication: HYPERTENSION
     Dosage: 20 MG, UNK
     Route: 048
  4. OXAZEPAM. [Concomitant]
     Active Substance: OXAZEPAM
     Indication: SLEEP DISORDER
     Dosage: 10 MG, UNK
     Route: 048
  5. PANTOPRAZOLE [Concomitant]
     Active Substance: PANTOPRAZOLE
     Dosage: 40 MG, QD (40 MG, DAILY)
     Route: 048
     Dates: end: 201804
  6. OPIPRAMOL [Concomitant]
     Active Substance: OPIPRAMOL
     Indication: SOMATIC SYMPTOM DISORDER
     Dosage: 25 MG, UNK
     Route: 048
  7. NAPROXEN. [Concomitant]
     Active Substance: NAPROXEN
     Indication: BONE PAIN
     Dosage: 250 MG, QD (250 MG, DAILY)
     Route: 048
  8. METOPROLOL. [Concomitant]
     Active Substance: METOPROLOL
     Indication: HYPERTENSION
     Dosage: 95 MG, UNK
     Route: 048
  9. COLECALCIFEROL [Concomitant]
     Active Substance: CHOLECALCIFEROL
     Indication: OSTEOPOROSIS
     Dosage: 400 IU, UNK
     Route: 048
  10. TORASEMID [Concomitant]
     Active Substance: TORSEMIDE
     Dosage: 10 MG, QD (10 MG, DAILY)
     Route: 048
  11. NOVAMINSULFON [Concomitant]
     Active Substance: METAMIZOLE
     Indication: ANALGESIC THERAPY
     Dosage: 160 MG, UNK
     Route: 048
  12. PREGABALIN. [Concomitant]
     Active Substance: PREGABALIN
     Dosage: 150 MG, QD (150 MILLIGRAM, DAILY)
     Route: 048
     Dates: start: 2018
  13. SIMVASTATIN. [Concomitant]
     Active Substance: SIMVASTATIN
     Indication: HYPERLIPIDAEMIA
     Dosage: 20 MG, QD (20 MG, DAILY)
     Route: 048
  14. VITAMIN D1 [Concomitant]
     Indication: PRODUCT USED FOR UNKNOWN INDICATION
     Dosage: 200 MG, QD
     Route: 048
     Dates: start: 2018
  15. CLOPIDOGREL BISULFATE. [Suspect]
     Active Substance: CLOPIDOGREL BISULFATE
     Indication: PRODUCT USED FOR UNKNOWN INDICATION
     Dosage: 75 MG, QD (75 MG, DAILY)
     Route: 048
     Dates: start: 20180201, end: 20180830
  16. PANTOPRAZOLE [Concomitant]
     Active Substance: PANTOPRAZOLE
     Indication: PROPHYLAXIS
     Dosage: 10 MG, QD (10 MG, DAILY)
     Route: 048
     Dates: start: 201804
  17. TORASEMID [Concomitant]
     Active Substance: TORSEMIDE
     Indication: PRODUCT USED FOR UNKNOWN INDICATION
     Dosage: 20 MG, QD (20 MG, DAILY)
     Route: 048
     Dates: end: 201804
  18. ALLOPURINOL. [Concomitant]
     Active Substance: ALLOPURINOL
     Indication: HYPERURICAEMIA
     Dosage: 100 MG, QD (100 MG, DAILY)
     Route: 048
     Dates: end: 2018
  19. ALENDRONIC ACID [Concomitant]
     Active Substance: ALENDRONIC ACID
     Indication: OSTEOPOROSIS
     Dosage: 10 MG, QD (10 MG, DAILY)
     Route: 048
  20. POTASSIUM CHLORIDE. [Concomitant]
     Active Substance: POTASSIUM CHLORIDE
     Indication: PRODUCT USED FOR UNKNOWN INDICATION
     Dosage: 600 MG, QD (600 MG, DAILY)
     Route: 048
     Dates: end: 201804
  21. TILIDIN [Concomitant]
     Active Substance: NALOXONE HYDROCHLORIDE\TILIDINE HYDROCHLORIDE
     Indication: ANALGESIC THERAPY
     Dosage: 50 MG, UNK
     Route: 048
  22. ACETYLSALICYLIC ACID [Suspect]
     Active Substance: ASPIRIN
     Indication: PRODUCT USED FOR UNKNOWN INDICATION
     Dosage: 100 MG, QD (100 MG, DAILY)
     Route: 048
  23. METOPROLOL. [Concomitant]
     Active Substance: METOPROLOL
     Dosage: 95 MG, QD (95 MG, DAILY)
     Route: 048
  24. PREGABALIN. [Concomitant]
     Active Substance: PREGABALIN
     Indication: PARAESTHESIA
     Dosage: 25 MG, QD (25 MG, DAILY)
     Route: 048
  25. RAMIPRIL. [Concomitant]
     Active Substance: RAMIPRIL
     Indication: HYPERTENSION
     Dosage: 5 MG, QD (5 MG, DAILY)
     Route: 048
  26. L-THYROXIN [Concomitant]
     Active Substance: LEVOTHYROXINE SODIUM
     Indication: HYPOTHYROIDISM
     Dosage: 50 UG, QD (50 ?G, DAILY)
     Route: 048
  27. AMLODIPIN [Concomitant]
     Active Substance: AMLODIPINE BESYLATE
     Indication: HYPERTENSION
     Dosage: 5 MG, QD (5 MG, DAILY)
     Route: 048
     Dates: start: 201804

REACTIONS (1)
  - Gastrooesophageal reflux disease [Recovered/Resolved]

NARRATIVE: CASE EVENT DATE: 20180928
